FAERS Safety Report 8194771 (Version 2)
Quarter: 2013Q2

REPORT INFORMATION
  Report Type: Spontaneous
  Country: RO (occurrence: None)
  Receive Date: 20111012
  Receipt Date: 20130524
  Transmission Date: 20140414
  Serious: Yes (Other)
  Sender: FDA-Public Use
  Company Number: HRA-CDB20110083

PATIENT
  Age: 32 Year
  Sex: Female
  Weight: 64 kg

DRUGS (1)
  1. ELLA [Suspect]
     Indication: CONTRACEPTION
     Route: 048
     Dates: start: 20110905, end: 20110905

REACTIONS (4)
  - Unintended pregnancy [None]
  - Maternal exposure during pregnancy [None]
  - Blighted ovum [None]
  - Abortion induced [None]
